FAERS Safety Report 5951095-5 (Version None)
Quarter: 2008Q4

REPORT INFORMATION
  Report Type: 
  Country: None (occurrence: None)
  Receive Date: 20081112
  Receipt Date: 20081112
  Transmission Date: 20090506
  Serious: Yes (Life-Threatening, Hospitalization)
  Sender: FDA-Public Use
  Company Number: None

PATIENT
  Age: 12 Year
  Sex: Female
  Weight: 19.8 kg

DRUGS (2)
  1. TOPAMAX [Suspect]
     Indication: CONVULSION
     Dosage: 75MG TID PO
     Route: 048
  2. DEPAKOTE [Suspect]
     Dosage: 500 MG AM 750MG HS PO
     Route: 048

REACTIONS (5)
  - CLONUS [None]
  - CONVULSION [None]
  - MYOCLONUS [None]
  - PYREXIA [None]
  - RESPIRATORY DISTRESS [None]
